FAERS Safety Report 11204963 (Version 1)
Quarter: 2015Q2

REPORT INFORMATION
  Report Type: Spontaneous
  Country: US (occurrence: US)
  Receive Date: 20150622
  Receipt Date: 20150622
  Transmission Date: 20150821
  Serious: No
  Sender: FDA-Public Use
  Company Number: US-009507513-1506USA008128

PATIENT
  Sex: Female

DRUGS (2)
  1. NEXPLANON [Suspect]
     Active Substance: ETONOGESTREL
     Indication: CONTRACEPTION
     Dosage: 1 ROD/ 3 YEARS IN THE PATIENTS ARM
     Route: 059
  2. NEXPLANON [Suspect]
     Active Substance: ETONOGESTREL
     Dosage: UNK/REPLACEMENT ROD
     Route: 059
     Dates: end: 2015

REACTIONS (3)
  - Implant site infection [Unknown]
  - Device breakage [Recovered/Resolved]
  - Skin disorder [Unknown]
